FAERS Safety Report 8122352-1 (Version None)
Quarter: 2012Q1

REPORT INFORMATION
  Report Type: 
  Country: None (occurrence: None)
  Receive Date: 20120208
  Receipt Date: 20120206
  Transmission Date: 20120608
  Serious: Yes (Congenital Anomaly)
  Sender: FDA-Public Use
  Company Number: US-GLAXOSMITHKLINE-A0680960A

PATIENT
  Sex: Female

DRUGS (1)
  1. PAXIL [Suspect]
     Indication: PRODUCT USED FOR UNKNOWN INDICATION
     Route: 064
     Dates: start: 20020327

REACTIONS (4)
  - SUPRAVENTRICULAR TACHYCARDIA [None]
  - PATENT DUCTUS ARTERIOSUS [None]
  - WOLFF-PARKINSON-WHITE SYNDROME [None]
  - FOETAL EXPOSURE DURING PREGNANCY [None]
